APPROVED DRUG PRODUCT: TRETINOIN
Active Ingredient: TRETINOIN
Strength: 10MG
Dosage Form/Route: CAPSULE;ORAL
Application: A201687 | Product #001 | TE Code: AB
Applicant: PH HEALTH LTD
Approved: Oct 24, 2012 | RLD: No | RS: Yes | Type: RX